FAERS Safety Report 8110066-3 (Version None)
Quarter: 2012Q1

REPORT INFORMATION
  Report Type: 
  Country: None (occurrence: None)
  Receive Date: 20120202
  Receipt Date: 20120124
  Transmission Date: 20120608
  Serious: No
  Sender: FDA-Public Use
  Company Number: US-AMGEN-USASP2012004987

PATIENT
  Age: 66 Year
  Sex: Female

DRUGS (1)
  1. ENBREL [Suspect]
     Indication: RHEUMATOID ARTHRITIS
     Dosage: 50 MG, QWK
     Dates: start: 20100101

REACTIONS (7)
  - ASTHENIA [None]
  - VOMITING [None]
  - LOCALISED INFECTION [None]
  - FATIGUE [None]
  - MALAISE [None]
  - BLOOD BLISTER [None]
  - LIMB INJURY [None]
